FAERS Safety Report 9181162 (Version 1)
Quarter: 2013Q1

REPORT INFORMATION
  Report Type: Spontaneous
  Country: US (occurrence: US)
  Receive Date: 20130322
  Receipt Date: 20130322
  Transmission Date: 20140127
  Serious: Yes (Hospitalization, Other)
  Sender: FDA-Public Use
  Company Number: US-BAYER-2013-033808

PATIENT
  Age: 42 Year
  Sex: Female

DRUGS (13)
  1. YASMIN [Suspect]
  2. YAZ [Suspect]
  3. BEYAZ [Suspect]
  4. GIANVI [Suspect]
  5. DEXILANT [Concomitant]
  6. MELOXICAM [Concomitant]
  7. BUPROPION [Concomitant]
  8. CYMBALTA [Concomitant]
     Indication: DEPRESSION
  9. MOBIC [Concomitant]
     Indication: ARTHRITIS
  10. XARELTO [Concomitant]
  11. LORTAB [Concomitant]
  12. DHE [DIHYDROERGOTAMINE MESILATE] [Concomitant]
  13. REGLAN [Concomitant]

REACTIONS (4)
  - Pulmonary embolism [None]
  - Deep vein thrombosis [None]
  - Thrombophlebitis superficial [None]
  - Thrombosis [None]
